FAERS Safety Report 18756029 (Version 2)
Quarter: 2021Q2

REPORT INFORMATION
  Report Type: Spontaneous
  Country: US (occurrence: US)
  Receive Date: 20210119
  Receipt Date: 20210503
  Transmission Date: 20210717
  Serious: Yes (Life-Threatening, Hospitalization)
  Sender: FDA-Public Use
  Company Number: US-TEVA-2021-US-1869805

PATIENT
  Age: 53 Year
  Sex: Male

DRUGS (9)
  1. NOREPINEPHRINE. [Suspect]
     Active Substance: NOREPINEPHRINE
     Indication: DISTRIBUTIVE SHOCK
     Dosage: UNKNOWN
     Route: 050
  2. AMLODIPINE [Suspect]
     Active Substance: AMLODIPINE BESYLATE
     Indication: OVERDOSE
     Dosage: 15 PILLS
     Route: 048
  3. CALCIUM [Suspect]
     Active Substance: CALCIUM
     Indication: DISTRIBUTIVE SHOCK
     Dosage: UNKNOWN
     Route: 065
  4. ASPIRIN. [Suspect]
     Active Substance: ASPIRIN
     Indication: OVERDOSE
     Dosage: 30 PILLS OF ASPIRIN (APPROXIMATELY 2500 MG)
     Route: 048
  5. INSULIN [Suspect]
     Active Substance: INSULIN NOS
     Dosage: 1000 IU/HR
     Route: 050
  6. DOPAMINE [Suspect]
     Active Substance: DOPAMINE HYDROCHLORIDE
     Indication: DISTRIBUTIVE SHOCK
     Dosage: UNKNOWN
     Route: 050
  7. FAT EMULSION NOS [Suspect]
     Active Substance: EGG PHOSPHOLIPIDS\SAFFLOWER OIL\SOYBEAN OIL
     Indication: DISTRIBUTIVE SHOCK
     Dosage: UNKNOWN
     Route: 042
  8. VALPROATE [Suspect]
     Active Substance: VALPROIC ACID
     Indication: OVERDOSE
     Dosage: 5 PILLS
     Route: 048
  9. INSULIN [Suspect]
     Active Substance: INSULIN NOS
     Indication: DISTRIBUTIVE SHOCK
     Dosage: UP TO 10 IU PER KG PER HOUR
     Route: 050

REACTIONS (8)
  - Acidosis [Recovered/Resolved]
  - Drug ineffective [Unknown]
  - Hypotension [Recovered/Resolved]
  - Pulmonary oedema [Recovered/Resolved]
  - Oliguria [Recovered/Resolved]
  - Overdose [Unknown]
  - Acute kidney injury [Recovered/Resolved]
  - Hypoxia [Recovered/Resolved]
